FAERS Safety Report 21977652 (Version 1)
Quarter: 2023Q1

REPORT INFORMATION
  Report Type: Spontaneous
  Country: US (occurrence: US)
  Receive Date: 20230210
  Receipt Date: 20230210
  Transmission Date: 20230418
  Serious: Yes (Hospitalization)
  Sender: FDA-Public Use
  Company Number: None

PATIENT
  Age: 37 Year
  Sex: Male
  Weight: 41 kg

DRUGS (14)
  1. LIDOCAINE [Suspect]
     Active Substance: LIDOCAINE
     Indication: Local anaesthesia
     Dosage: 1.8 MILLILITER, RECEIVED 1.8 ML LIDOCAINE ALONG WITH EPINEPHRINE ON FIRST APPOINTMENT
     Route: 002
  2. LIDOCAINE [Suspect]
     Active Substance: LIDOCAINE
     Dosage: 72 MILLIGRAM, RECEIVED 3.6ML LIDOCAINE ALONG WITH EPINEPHRINE
     Route: 002
  3. ARTICAINE [Suspect]
     Active Substance: ARTICAINE
     Indication: Local anaesthesia
     Dosage: 144 MILLIGRAM, RECEIVED 3.6ML ARTICAINE ALONG WITH EPINEPHRINE
     Route: 002
  4. ARTICAINE [Suspect]
     Active Substance: ARTICAINE
     Dosage: 72 MILLIGRAM, RECEIVED TWO DOSES OF 1.8ML OF ARTICAINE
     Route: 002
  5. MIDAZOLAM [Suspect]
     Active Substance: MIDAZOLAM
     Indication: General anaesthesia
     Dosage: 1 MILLIGRAM, RECEIVED 3 DOSES
     Route: 042
  6. PROPOFOL [Suspect]
     Active Substance: PROPOFOL
     Indication: General anaesthesia
     Dosage: 80 MILLIGRAM
     Route: 065
  7. PROPOFOL [Suspect]
     Active Substance: PROPOFOL
     Dosage: 50 MILLIGRAM
     Route: 065
  8. SUCCINYLCHOLINE [Suspect]
     Active Substance: SUCCINYLCHOLINE
     Indication: General anaesthesia
     Dosage: 80 MILLIGRAM
     Route: 065
  9. FLUMAZENIL [Suspect]
     Active Substance: FLUMAZENIL
     Indication: Anaesthesia reversal
     Dosage: 0.1 MILLIGRAM, RECEIVED 2 DOSES
     Route: 042
  10. EPINEPHRINE [Concomitant]
     Active Substance: EPINEPHRINE
     Indication: Product used for unknown indication
     Dosage: UNK, LIDOCAINE WITH 1:100 000 EPINEPHRINE
     Route: 002
  11. EPINEPHRINE [Concomitant]
     Active Substance: EPINEPHRINE
     Dosage: UNK, ARTICAINE WITH 1:100 000 EPINEPHRINE
     Route: 002
  12. SODIUM CHLORIDE [Concomitant]
     Active Substance: SODIUM CHLORIDE
     Indication: Product used for unknown indication
     Dosage: UNK
     Route: 042
  13. DOCUSATE [Concomitant]
     Active Substance: DOCUSATE
     Indication: Product used for unknown indication
     Dosage: UNK
     Route: 065
  14. SENNA [Concomitant]
     Active Substance: SENNA LEAF\SENNOSIDES\SENNOSIDES A AND B
     Indication: Product used for unknown indication
     Dosage: UNK
     Route: 065

REACTIONS (4)
  - Overdose [Unknown]
  - Hypoxia [Unknown]
  - Electrocardiogram ST segment elevation [Recovered/Resolved]
  - Toxicity to various agents [Unknown]
